FAERS Safety Report 8873042 (Version 1)
Quarter: 2012Q4

REPORT INFORMATION
  Report Type: 
  Country: US (occurrence: US)
  Receive Date: 20121029
  Receipt Date: 20121029
  Transmission Date: 20130627
  Serious: Yes (Death)
  Sender: FDA-Public Use
  Company Number: US-CUBIST-2012S1000845

PATIENT
  Age: 55 Year
  Sex: Male

DRUGS (10)
  1. CUBICIN [Suspect]
     Indication: ENTEROCOCCAL INFECTION
     Route: 042
  2. CUBICIN [Suspect]
     Indication: MENINGITIS ENTEROCOCCAL
     Route: 042
  3. CUBICIN [Suspect]
     Indication: ENTEROCOCCAL INFECTION
     Route: 042
  4. CUBICIN [Suspect]
     Indication: MENINGITIS ENTEROCOCCAL
     Route: 042
  5. LINEZOLID [Concomitant]
     Indication: ENTEROCOCCAL INFECTION
     Route: 065
  6. QUINUPRISTIN/DALFOPRISTIN [Concomitant]
     Indication: MENINGITIS ENTEROCOCCAL
     Route: 042
  7. ANTINEOPLASTIC AGENTS [Concomitant]
     Indication: ACUTE MYELOID LEUKAEMIA
  8. FLUDARABINE [Concomitant]
     Indication: PRODUCT USED FOR UNKNOWN INDICATION
     Route: 065
  9. CYCLOPHOSPHAMIDE [Concomitant]
     Indication: PRODUCT USED FOR UNKNOWN INDICATION
     Route: 065
  10. ALEMTUZUMAB [Concomitant]
     Route: 065

REACTIONS (9)
  - Sepsis [Fatal]
  - Renal failure [Fatal]
  - Respiratory failure [Fatal]
  - Antimicrobial susceptibility test resistant [Unknown]
  - Mental status changes [Unknown]
  - Pyrexia [Unknown]
  - Musculoskeletal stiffness [Unknown]
  - Myalgia [Unknown]
  - Headache [Unknown]
